FAERS Safety Report 9238257 (Version 4)
Quarter: 2014Q3

REPORT INFORMATION
  Report Type: Spontaneous
  Country: US (occurrence: None)
  Receive Date: 20130415
  Receipt Date: 20140922
  Transmission Date: 20150326
  Serious: Yes (Hospitalization)
  Sender: FDA-Public Use
  Company Number: 2013US001439

PATIENT
  Age: 56 Year
  Sex: Male
  Weight: 164 kg

DRUGS (6)
  1. DECADRON (DEXAMETHASONE ACETATE) [Concomitant]
  2. OPIOIDS [Concomitant]
     Active Substance: UNSPECIFIED INGREDIENT
  3. CITALOPRAM (CITALOPRAM) [Concomitant]
     Active Substance: CITALOPRAM HYDROBROMIDE
  4. ICLUSIG [Suspect]
     Active Substance: PONATINIB
     Indication: CHRONIC MYELOID LEUKAEMIA
     Route: 048
     Dates: start: 20130330, end: 20130401
  5. GABAPENTIN (GABAPENTIN) [Concomitant]
     Active Substance: GABAPENTIN
  6. BENADRYL [Concomitant]
     Active Substance: DIPHENHYDRAMINE HYDROCHLORIDE

REACTIONS (10)
  - Nausea [None]
  - Mastocytosis [None]
  - Anaphylactic shock [None]
  - Cholelithiasis [None]
  - Hypersensitivity [None]
  - Shock [None]
  - Splenomegaly [None]
  - Cholangitis [None]
  - Systemic mastocytosis [None]
  - Abdominal pain [None]

NARRATIVE: CASE EVENT DATE: 20130401
